FAERS Safety Report 4424170-4 (Version None)
Quarter: 2004Q3

REPORT INFORMATION
  Report Type: 
  Country: None (occurrence: None)
  Receive Date: 20040810
  Receipt Date: 20040810
  Transmission Date: 20050211
  Serious: Yes (Other)
  Sender: FDA-Public Use
  Company Number: None

PATIENT
  Age: 36 Year
  Sex: Female
  Weight: 90.2658 kg

DRUGS (1)
  1. BUDEPRION SR [Suspect]
     Indication: DEPRESSION
     Dosage: 150 MG PO BID
     Route: 048

REACTIONS (4)
  - FATIGUE [None]
  - INSOMNIA [None]
  - IRRITABILITY [None]
  - PHARMACEUTICAL PRODUCT COMPLAINT [None]
